FAERS Safety Report 17804985 (Version 2)
Quarter: 2021Q2

REPORT INFORMATION
  Report Type: Spontaneous
  Country: CA (occurrence: CA)
  Receive Date: 20200520
  Receipt Date: 20210531
  Transmission Date: 20210716
  Serious: Yes (Death, Hospitalization, Other)
  Sender: FDA-Public Use
  Company Number: CA-AUROBINDO-AUR-APL-2020-025013

PATIENT
  Age: 69 Year
  Sex: Male
  Weight: 121 kg

DRUGS (7)
  1. AMOXICILLIN. [Concomitant]
     Active Substance: AMOXICILLIN
     Indication: BACTERIAL INFECTION
     Dosage: UNK
     Route: 065
  2. REVLIMID [Suspect]
     Active Substance: LENALIDOMIDE
     Indication: STEM CELL TRANSPLANT
     Dosage: 10 MILLIGRAM, ONCE A DAY
     Route: 048
  3. MELPHALAN. [Suspect]
     Active Substance: MELPHALAN
     Indication: STEM CELL TRANSPLANT
     Dosage: 292 MG
     Route: 042
  4. BUSULFAN. [Suspect]
     Active Substance: BUSULFAN
     Indication: STEM CELL TRANSPLANT
     Dosage: 282 MG
     Route: 042
  5. CEFAZOLIN SODIUM. [Concomitant]
     Active Substance: CEFAZOLIN SODIUM
     Indication: PNEUMONIA
     Dosage: UNK
     Route: 065
  6. CLAVULANIC ACID [Concomitant]
     Active Substance: CLAVULANIC ACID
     Indication: BACTERIAL INFECTION
     Dosage: UNK
     Route: 065
  7. ENOXAPARIN SODIUM. [Concomitant]
     Active Substance: ENOXAPARIN SODIUM
     Indication: ANTICOAGULANT THERAPY
     Dosage: UNK
     Route: 058

REACTIONS (3)
  - Pneumonia [Fatal]
  - Pulmonary embolism [Not Recovered/Not Resolved]
  - Adenosquamous cell lung cancer [Not Recovered/Not Resolved]
